FAERS Safety Report 8357085-X (Version None)
Quarter: 2012Q2

REPORT INFORMATION
  Report Type: 
  Country: None (occurrence: None)
  Receive Date: 20120514
  Receipt Date: 20120509
  Transmission Date: 20120825
  Serious: Yes (Other)
  Sender: FDA-Public Use
  Company Number: JP-PFIZER INC-2012096611

PATIENT
  Sex: Female

DRUGS (2)
  1. CELECOXIB [Suspect]
     Indication: TOOTHACHE
     Dosage: UNK
     Route: 048
     Dates: end: 20120418
  2. LYRICA [Suspect]
     Indication: TOOTHACHE
     Dosage: UNK
     Route: 048
     Dates: start: 20120416, end: 20120418

REACTIONS (9)
  - ARTHRALGIA [None]
  - NAUSEA [None]
  - ABDOMINAL PAIN UPPER [None]
  - PALPITATIONS [None]
  - OROPHARYNGEAL PAIN [None]
  - HEADACHE [None]
  - TREMOR [None]
  - PHARYNGEAL DISORDER [None]
  - SOMNOLENCE [None]
